FAERS Safety Report 10040183 (Version 2)
Quarter: 2014Q1

REPORT INFORMATION
  Report Type: Spontaneous
  Country: US (occurrence: US)
  Receive Date: 20140326
  Receipt Date: 20140326
  Transmission Date: 20141002
  Serious: Yes (Other)
  Sender: FDA-Public Use
  Company Number: US-GE HEALTHCARE MEDICAL DIAGNOSTICS-OSCN-PR-0905S-0278

PATIENT
  Age: 42 Year
  Sex: Female

DRUGS (4)
  1. OMNISCAN [Suspect]
     Indication: RENAL ARTERY STENOSIS
     Route: 042
     Dates: start: 20050607, end: 20050607
  2. OMNISCAN [Suspect]
     Indication: BACK PAIN
     Route: 042
     Dates: start: 20060619, end: 20060619
  3. OMNISCAN [Suspect]
     Indication: CATHETER PLACEMENT
     Route: 042
     Dates: start: 20080108, end: 20080108
  4. MAGNEVIST [Suspect]
     Indication: CENTRAL NERVOUS SYSTEM NEOPLASM
     Route: 042
     Dates: start: 20060616, end: 20060616

REACTIONS (1)
  - Nephrogenic systemic fibrosis [Not Recovered/Not Resolved]
